FAERS Safety Report 8116229-5 (Version None)
Quarter: 2012Q1

REPORT INFORMATION
  Report Type: 
  Country: None (occurrence: None)
  Receive Date: 20120131
  Receipt Date: 20120124
  Transmission Date: 20120608
  Serious: Yes (Hospitalization)
  Sender: FDA-Public Use
  Company Number: 2012SP004786

PATIENT
  Age: 13 Year
  Sex: Male

DRUGS (1)
  1. CLARITIN [Suspect]
     Indication: URTICARIA
     Dosage: PO
     Route: 048

REACTIONS (3)
  - JAUNDICE [None]
  - EOSINOPHIL COUNT INCREASED [None]
  - HEPATIC FUNCTION ABNORMAL [None]
